FAERS Safety Report 10609759 (Version 1)
Quarter: 2014Q4

REPORT INFORMATION
  Report Type: Spontaneous
  Country: DE (occurrence: None)
  Receive Date: 20141124
  Receipt Date: 20141124
  Transmission Date: 20150529
  Serious: Yes (Disabling, Congenital Anomaly)
  Sender: FDA-Public Use
  Company Number: DE2014023074

PATIENT
  Age: 1 Day
  Sex: Male
  Weight: 3.64 kg

DRUGS (1)
  1. PAROXETINE [Suspect]
     Active Substance: PAROXETINE\PAROXETINE HYDROCHLORIDE
     Indication: DEPRESSION
     Route: 064
     Dates: start: 20121115, end: 20130822

REACTIONS (6)
  - Limb reduction defect [None]
  - Hypoglycaemia neonatal [None]
  - Brachydactyly [None]
  - Maternal drugs affecting foetus [None]
  - Atrial septal defect [None]
  - Oculoauriculovertebral dysplasia [None]

NARRATIVE: CASE EVENT DATE: 20130822
